FAERS Safety Report 4656828-6 (Version None)
Quarter: 2005Q2

REPORT INFORMATION
  Report Type: 
  Country: None (occurrence: None)
  Receive Date: 20050505
  Receipt Date: 20050421
  Transmission Date: 20051028
  Serious: Yes (Hospitalization)
  Sender: FDA-Public Use
  Company Number: 2005AP02482

PATIENT
  Age: 17 Month
  Weight: 9 kg

DRUGS (3)
  1. OMEPRAZOLE [Suspect]
     Dates: start: 20040205
  2. LIGNOCAINE [Suspect]
     Dates: start: 20040205, end: 20040205
  3. ULTANE [Suspect]
     Indication: SENSORY DISTURBANCE
     Dates: start: 20040205, end: 20040205

REACTIONS (1)
  - ILEUS [None]
